FAERS Safety Report 21331599 (Version 2)
Quarter: 2022Q4

REPORT INFORMATION
  Report Type: Spontaneous
  Country: US (occurrence: US)
  Receive Date: 20220914
  Receipt Date: 20221222
  Transmission Date: 20230113
  Serious: Yes (Other)
  Sender: FDA-Public Use
  Company Number: US-JNJFOC-20220920986

PATIENT
  Age: 61 Year
  Sex: Female

DRUGS (32)
  1. ELMIRON [Suspect]
     Active Substance: PENTOSAN POLYSULFATE SODIUM
     Indication: Cystitis interstitial
     Dosage: 300 MG PER DAY
     Route: 048
     Dates: start: 20080602, end: 20081112
  2. ELMIRON [Suspect]
     Active Substance: PENTOSAN POLYSULFATE SODIUM
     Dosage: 200 MG PER DAY
     Route: 048
     Dates: start: 20081228, end: 20090129
  3. ELMIRON [Suspect]
     Active Substance: PENTOSAN POLYSULFATE SODIUM
     Dosage: 300 MG PER DAY
     Route: 048
     Dates: start: 20090305, end: 20090728
  4. ELMIRON [Suspect]
     Active Substance: PENTOSAN POLYSULFATE SODIUM
     Dosage: 300 MG PER DAY
     Route: 048
     Dates: start: 20090904, end: 20101210
  5. ELMIRON [Suspect]
     Active Substance: PENTOSAN POLYSULFATE SODIUM
     Dosage: 200 MG PER DAY
     Route: 048
     Dates: start: 20110118, end: 20111223
  6. ELMIRON [Suspect]
     Active Substance: PENTOSAN POLYSULFATE SODIUM
     Dosage: 200 MG PER DAY
     Route: 048
     Dates: start: 20120123, end: 20180107
  7. ELMIRON [Suspect]
     Active Substance: PENTOSAN POLYSULFATE SODIUM
     Dosage: 200 MG PER DAY
     Route: 048
     Dates: start: 20180207, end: 20190512
  8. ELMIRON [Suspect]
     Active Substance: PENTOSAN POLYSULFATE SODIUM
     Dosage: 200 MG PER DAY
     Route: 048
     Dates: start: 20190611, end: 20200811
  9. RANITIDINE [Concomitant]
     Active Substance: RANITIDINE
     Indication: Gastrooesophageal reflux disease
     Dates: start: 20110629, end: 20111230
  10. RANITIDINE [Concomitant]
     Active Substance: RANITIDINE
     Dates: start: 20120307, end: 20151225
  11. RANITIDINE [Concomitant]
     Active Substance: RANITIDINE
     Dates: start: 20160329, end: 20170317
  12. RANITIDINE [Concomitant]
     Active Substance: RANITIDINE
     Dates: start: 20170613, end: 20191206
  13. OMEPRAZOLE [Concomitant]
     Active Substance: OMEPRAZOLE
     Indication: Gastrooesophageal reflux disease
     Dates: start: 20141204, end: 20210614
  14. NITROFURANTOIN [Concomitant]
     Active Substance: NITROFURANTOIN
     Indication: Cystitis
     Dates: start: 20080402, end: 20081120
  15. NITROFURANTOIN [Concomitant]
     Active Substance: NITROFURANTOIN
     Dates: start: 20090121
  16. NITROFURANTOIN [Concomitant]
     Active Substance: NITROFURANTOIN
     Dates: start: 20090220, end: 20111213
  17. NITROFURANTOIN [Concomitant]
     Active Substance: NITROFURANTOIN
     Dates: start: 20120116, end: 20140313
  18. NITROFURANTOIN [Concomitant]
     Active Substance: NITROFURANTOIN
     Dates: start: 20140610, end: 20150218
  19. NITROFURANTOIN [Concomitant]
     Active Substance: NITROFURANTOIN
     Dates: start: 20150519, end: 20150813
  20. NITROFURANTOIN [Concomitant]
     Active Substance: NITROFURANTOIN
     Dates: start: 20151130, end: 20200924
  21. NITROFURANTOIN [Concomitant]
     Active Substance: NITROFURANTOIN
     Dates: start: 20210316, end: 20210509
  22. DICYCLOMINE [Concomitant]
     Active Substance: DICYCLOMINE HYDROCHLORIDE
     Indication: Irritable bowel syndrome
     Dates: start: 20100611, end: 20111024
  23. DICYCLOMINE [Concomitant]
     Active Substance: DICYCLOMINE HYDROCHLORIDE
     Dates: start: 20120124
  24. DICYCLOMINE [Concomitant]
     Active Substance: DICYCLOMINE HYDROCHLORIDE
     Dates: start: 20120425, end: 20210402
  25. LIALDA [Concomitant]
     Active Substance: MESALAMINE
     Indication: Colitis ulcerative
     Dates: start: 20150220, end: 20160128
  26. LIALDA [Concomitant]
     Active Substance: MESALAMINE
     Dates: start: 20160530, end: 20161229
  27. LIALDA [Concomitant]
     Active Substance: MESALAMINE
     Dates: start: 20181220, end: 20190712
  28. DARIFENACIN [Concomitant]
     Active Substance: DARIFENACIN
     Indication: Hypertonic bladder
     Dates: start: 20160419, end: 20171208
  29. DARIFENACIN [Concomitant]
     Active Substance: DARIFENACIN
     Indication: Cystitis interstitial
     Dates: start: 20180208, end: 20180507
  30. DARIFENACIN [Concomitant]
     Active Substance: DARIFENACIN
     Dates: start: 20180809, end: 20190503
  31. DARIFENACIN [Concomitant]
     Active Substance: DARIFENACIN
     Dates: start: 20190302, end: 20200227
  32. DARIFENACIN [Concomitant]
     Active Substance: DARIFENACIN
     Dates: start: 20200525, end: 20210516

REACTIONS (3)
  - Neovascular age-related macular degeneration [Not Recovered/Not Resolved]
  - Retinal pigmentation [Unknown]
  - Off label use [Unknown]

NARRATIVE: CASE EVENT DATE: 20081228
